FAERS Safety Report 23986577 (Version 1)
Quarter: 2024Q2

REPORT INFORMATION
  Report Type: Report from Study
  Country: US (occurrence: US)
  Receive Date: 20240618
  Receipt Date: 20240618
  Transmission Date: 20240716
  Serious: Yes (Other)
  Sender: FDA-Public Use
  Company Number: US-UCBSA-2024030805

PATIENT
  Sex: Female
  Weight: 81.179 kg

DRUGS (4)
  1. CERTOLIZUMAB PEGOL [Suspect]
     Active Substance: CERTOLIZUMAB PEGOL
     Indication: Psoriatic arthropathy
     Dosage: 400 MILLIGRAM, EV 2 WEEKS(QOW)
     Route: 058
  2. CLOBETASOL PROPIONATE [Concomitant]
     Active Substance: CLOBETASOL PROPIONATE
     Indication: Product used for unknown indication
     Dosage: 0.05 % SOLUTION 1 APPLICATION EXTERNALLY TWICE A DAY
  3. ENBREL [Concomitant]
     Active Substance: BENZYL ALCOHOL\ETANERCEPT
     Indication: Product used for unknown indication
     Dosage: 50 MG/ML SOLUTION AUTO-INJECTOR INJECT 1 SYRINGE (50MG) SUBCUTANEOUS WEEKLY
     Route: 058
  4. HYDROXYCHLOROQUINE SULFATE [Concomitant]
     Active Substance: HYDROXYCHLOROQUINE SULFATE
     Indication: Product used for unknown indication
     Dosage: 200 MG TABLET ALTERNATE BETWEEN 1-2 TABS ORALLY DAILY
     Route: 048

REACTIONS (7)
  - Psoriatic arthropathy [Unknown]
  - Tenosynovitis [Unknown]
  - Myositis [Unknown]
  - Alopecia [Unknown]
  - Dry mouth [Unknown]
  - Night sweats [Unknown]
  - Synovitis [Unknown]
